FAERS Safety Report 21059361 (Version 1)
Quarter: 2022Q3

REPORT INFORMATION
  Report Type: Spontaneous
  Country: US (occurrence: US)
  Receive Date: 20220708
  Receipt Date: 20220708
  Transmission Date: 20221027
  Serious: No
  Sender: FDA-Public Use
  Company Number: US-TEVA-2022-US-2045953

PATIENT
  Age: 87 Year

DRUGS (1)
  1. ANAGRELIDE HYDROCHLORIDE [Suspect]
     Active Substance: ANAGRELIDE HYDROCHLORIDE
     Indication: Platelet disorder
     Dosage: 6 MILLIGRAM DAILY; LONGER THAN 2 YEARS, I^M TAKING 6 A DAY
     Route: 065
     Dates: start: 2019

REACTIONS (2)
  - Platelet count decreased [Unknown]
  - Recalled product administered [Unknown]
